FAERS Safety Report 9521328 (Version 2)
Quarter: 2013Q4

REPORT INFORMATION
  Report Type: Report from Study
  Country: US (occurrence: US)
  Receive Date: 20130913
  Receipt Date: 20131202
  Transmission Date: 20140711
  Serious: Yes (Other)
  Sender: FDA-Public Use
  Company Number: US-JNJFOC-20130903691

PATIENT
  Age: 58 Year
  Sex: Female
  Weight: 90.27 kg

DRUGS (1)
  1. USTEKINUMAB [Suspect]
     Indication: PSORIASIS
     Route: 058
     Dates: start: 201110, end: 201303

REACTIONS (1)
  - Latent tuberculosis [Not Recovered/Not Resolved]
